FAERS Safety Report 22149405 (Version 2)
Quarter: 2023Q2

REPORT INFORMATION
  Report Type: Report from Study
  Country: DE (occurrence: None)
  Receive Date: 20230329
  Receipt Date: 20230412
  Transmission Date: 20230722
  Serious: Yes (Hospitalization)
  Sender: FDA-Public Use
  Company Number: DE-Merck Healthcare KGaA-9391280

PATIENT
  Age: 65 Year
  Sex: Female

DRUGS (16)
  1. REBIF [Suspect]
     Active Substance: INTERFERON BETA-1A
     Indication: Multiple sclerosis
     Route: 058
     Dates: start: 2007, end: 202303
  2. DALFAMPRIDINE [Concomitant]
     Active Substance: DALFAMPRIDINE
     Indication: Product used for unknown indication
     Dates: start: 2017
  3. MOVICOL [Concomitant]
     Active Substance: POLYETHYLENE GLYCOL 3350\POTASSIUM CHLORIDE\SODIUM BICARBONATE\SODIUM CHLORIDE
     Indication: Product used for unknown indication
     Dates: start: 2017
  4. HYPERICUM PERFORATUM WHOLE [Concomitant]
     Active Substance: HYPERICUM PERFORATUM WHOLE
     Indication: Product used for unknown indication
     Dosage: 900 (UNSPECIFIED UNIT)
     Dates: start: 2017
  5. PANCREATIN [Concomitant]
     Active Substance: PANCRELIPASE
     Indication: Product used for unknown indication
     Dosage: 20000 (UNSPECIFIED UNIT)
     Dates: start: 2013
  6. CHOLECALCIFEROL [Concomitant]
     Active Substance: CHOLECALCIFEROL
     Indication: Product used for unknown indication
     Dates: start: 2017
  7. PANTOPRAZOLE [Concomitant]
     Active Substance: PANTOPRAZOLE
     Indication: Product used for unknown indication
     Dosage: IF NEEDED
     Dates: start: 2013
  8. BROTIZOLAM [Concomitant]
     Active Substance: BROTIZOLAM
     Indication: Product used for unknown indication
     Dosage: IF NEEDED
     Dates: start: 2015
  9. OESTRO-GYNAEDRON [Concomitant]
     Indication: Product used for unknown indication
     Dates: start: 2012
  10. CRANBERRY PLUS D MANNOS [Concomitant]
     Indication: Product used for unknown indication
     Dates: start: 2017
  11. HERBALS [Concomitant]
     Active Substance: HERBALS
     Indication: Product used for unknown indication
     Dosage: IF NEEDED
     Dates: start: 2012
  12. METAMIZOLE [Concomitant]
     Active Substance: METAMIZOLE
     Indication: Product used for unknown indication
     Dosage: IF NEEDED
  13. HOMEOPATHICS [Concomitant]
     Active Substance: ARNICA MONTANA\CAUSTICUM\COMFREY ROOT\HOMEOPATHICS\LEDUM PALUSTRE TWIG\PSEUDOGNAPHALIUM OBTUSIFOLIUM
     Indication: Product used for unknown indication
     Dosage: UP TO 5 TABLETS/DAY
     Dates: start: 2011
  14. BIOLECTRA [Concomitant]
     Indication: Product used for unknown indication
     Dates: start: 2017
  15. KELTICAN [CYTIDINE PHOSPHATE SODIUM;DISODIUM URIDINE MONOPHOSPHATE;URI [Concomitant]
     Indication: Product used for unknown indication
     Dates: start: 2000
  16. LEVOTHYROXINE SODIUM [Concomitant]
     Active Substance: LEVOTHYROXINE SODIUM
     Indication: Product used for unknown indication
     Dates: start: 2016

REACTIONS (1)
  - Goitre [Unknown]

NARRATIVE: CASE EVENT DATE: 20180101
